FAERS Safety Report 8365275-5 (Version None)
Quarter: 2012Q1

REPORT INFORMATION
  Report Type: 
  Country: None (occurrence: None)
  Receive Date: 20120323
  Receipt Date: 20110705
  Transmission Date: 20120608
  Serious: Yes (Hospitalization)
  Sender: FDA-Public Use
  Company Number: 163-21880-11041658

PATIENT
  Age: 46 Year
  Sex: Male
  Weight: 127 kg

DRUGS (12)
  1. SENNA (SENNA) [Concomitant]
  2. REVLIMID [Suspect]
     Indication: MULTIPLE MYELOMA
     Dosage: DAILY FOR 21 DAYS, PO
     Route: 048
     Dates: start: 20110301
  3. MORPHINE [Concomitant]
  4. COUMADIN [Concomitant]
  5. VANCOMYCIN [Concomitant]
  6. OXYCODONE HCL [Concomitant]
  7. DULCOLAX [Concomitant]
  8. MIRALAX [Concomitant]
  9. VELCADE [Concomitant]
  10. LOMOTIL [Concomitant]
  11. STOOL SOFTENER (DOCUSATE SODIUM) [Concomitant]
  12. OXYCONTIN [Concomitant]

REACTIONS (5)
  - VIRAL DIARRHOEA [None]
  - PAIN [None]
  - DEHYDRATION [None]
  - ABDOMINAL DISTENSION [None]
  - MULTIPLE MYELOMA [None]
